FAERS Safety Report 9703949 (Version 1)
Quarter: 2013Q4

REPORT INFORMATION
  Report Type: Spontaneous
  Country: US (occurrence: US)
  Receive Date: 20131122
  Receipt Date: 20131122
  Transmission Date: 20140711
  Serious: Yes (Other)
  Sender: FDA-Public Use
  Company Number: US-BAYER-2013-139632

PATIENT
  Age: 81 Year
  Sex: Male

DRUGS (1)
  1. CIPRO [Suspect]
     Indication: URINARY TRACT INFECTION
     Dosage: UNK, BID
     Route: 048
     Dates: start: 20121227, end: 20121229

REACTIONS (8)
  - Tendon rupture [None]
  - Muscular weakness [None]
  - Local swelling [None]
  - Clostridium difficile colitis [None]
  - Anorectal discomfort [None]
  - Diarrhoea [None]
  - Tendon disorder [None]
  - Malaise [None]
